FAERS Safety Report 20665579 (Version 3)
Quarter: 2022Q2

REPORT INFORMATION
  Report Type: Report from Study
  Country: US (occurrence: US)
  Receive Date: 20220402
  Receipt Date: 20220415
  Transmission Date: 20220720
  Serious: No
  Sender: FDA-Public Use
  Company Number: US-NOVARTISTESTPH-NVSC2022US074457

PATIENT
  Sex: Male

DRUGS (3)
  1. ILARIS [Suspect]
     Active Substance: CANAKINUMAB
     Indication: Still^s disease
     Dosage: 240 MG, QMO
     Route: 058
     Dates: start: 20220105
  2. ILARIS [Suspect]
     Active Substance: CANAKINUMAB
     Indication: Arthralgia
     Dosage: 260 MG, Q4W
     Route: 058
  3. ILARIS [Suspect]
     Active Substance: CANAKINUMAB
     Indication: Juvenile idiopathic arthritis

REACTIONS (4)
  - Weight increased [Unknown]
  - Arthritis [Unknown]
  - Pain [Unknown]
  - Condition aggravated [Unknown]
